FAERS Safety Report 8845728 (Version 2)
Quarter: 2013Q1

REPORT INFORMATION
  Report Type: Report from Study
  Country: US (occurrence: US)
  Receive Date: 20121017
  Receipt Date: 20130222
  Transmission Date: 20140127
  Serious: Yes (Congenital Anomaly)
  Sender: FDA-Public Use
  Company Number: US-ABBOTT-12P-163-0993747-00

PATIENT
  Sex: 0

DRUGS (2)
  1. KALETRA [Suspect]
     Indication: MATERNAL EXPOSURE TIMING UNSPECIFIED
  2. COMBIVIR [Suspect]
     Indication: MATERNAL EXPOSURE TIMING UNSPECIFIED

REACTIONS (3)
  - Congenital choroid plexus cyst [Unknown]
  - Trisomy 18 [Unknown]
  - Foetal exposure during pregnancy [Unknown]
